FAERS Safety Report 6941892-1 (Version None)
Quarter: 2010Q3

REPORT INFORMATION
  Report Type: 
  Country: None (occurrence: None)
  Receive Date: 20100826
  Receipt Date: 20100817
  Transmission Date: 20110219
  Serious: No
  Sender: FDA-Public Use
  Company Number: US-PFIZER INC-2010103854

PATIENT
  Sex: Male
  Weight: 102.95 kg

DRUGS (6)
  1. GABAPENTIN [Suspect]
     Indication: NEURALGIA
     Dosage: 300 MG, 3X/DAY
     Route: 048
     Dates: start: 20100101
  2. DOXAZOSIN [Concomitant]
     Indication: PROSTATOMEGALY
     Dosage: 6 MG, DAILY BEFORE GOING TO BED
     Route: 048
     Dates: start: 20070101
  3. WARFARIN SODIUM [Concomitant]
     Indication: THROMBOCYTOSIS
     Dosage: 5 MG, DAILY AT BEDTIME
     Route: 048
     Dates: start: 19790101
  4. ALENDRONIC ACID [Concomitant]
     Indication: OSTEOPOROSIS
     Dosage: 70 MG, WEEKLY
     Route: 048
     Dates: start: 20080101
  5. MULTI-VITAMINS [Concomitant]
     Dosage: UNK, DAILY
     Dates: start: 19630101
  6. CALCIUM WITH VITAMIN D [Concomitant]
     Dosage: 600 MG, 2X/DAY
     Dates: start: 20090101

REACTIONS (1)
  - DIZZINESS [None]
